FAERS Safety Report 5200112-9 (Version None)
Quarter: 2007Q1

REPORT INFORMATION
  Report Type: 
  Country: None (occurrence: None)
  Receive Date: 20070105
  Receipt Date: 20061227
  Transmission Date: 20070707
  Serious: Yes (Other)
  Sender: FDA-Public Use
  Company Number: NL-GLAXOSMITHKLINE-B0452806A

PATIENT
  Age: 61 Year
  Sex: Female

DRUGS (2)
  1. FLUTICASONE PROPIONATE [Suspect]
     Indication: ASTHMA
     Dosage: 1000MCG PER DAY
     Route: 055
     Dates: start: 20020918
  2. FLUTICASONE PROPIONATE NASAL SPRAY [Concomitant]
     Dosage: 100MCG PER DAY
     Route: 045

REACTIONS (2)
  - AGEUSIA [None]
  - ANOSMIA [None]
